FAERS Safety Report 20968969 (Version 1)
Quarter: 2022Q2

REPORT INFORMATION
  Report Type: Spontaneous
  Country: US (occurrence: US)
  Receive Date: 20220616
  Receipt Date: 20220616
  Transmission Date: 20220721
  Serious: No
  Sender: FDA-Public Use
  Company Number: US-MYLANLABS-2022M1043380

PATIENT
  Sex: Female

DRUGS (5)
  1. CLONIDINE TRANSDERMAL SYSTEM [Suspect]
     Active Substance: CLONIDINE
     Indication: Hypertension
     Dosage: 0.2 MILLIGRAM, QD (USED ONE PATCH PER WEEK)
     Route: 062
     Dates: start: 20220420
  2. AMLODIPINE [Concomitant]
     Active Substance: AMLODIPINE BESYLATE
     Indication: Hypertension
     Dosage: 10 MILLIGRAM, QD (ONCE A DAY)
  3. LEVOTHYROXINE [Concomitant]
     Active Substance: LEVOTHYROXINE
     Indication: Hypothyroidism
     Dosage: 175 MILLIGRAM, QD (ONCE A DAY)
  4. GLIPIZIDE [Concomitant]
     Active Substance: GLIPIZIDE
     Indication: Diabetes mellitus
     Dosage: 10 MILLIGRAM, QD (ONCE A DAY)
  5. CITALOPRAM [Concomitant]
     Active Substance: CITALOPRAM HYDROBROMIDE
     Indication: Depression
     Dosage: 20 MILLIGRAM (ONCE A DAY)

REACTIONS (2)
  - Oedema [Recovered/Resolved]
  - Weight increased [Recovered/Resolved]
